FAERS Safety Report 5546735-9 (Version None)
Quarter: 2007Q4

REPORT INFORMATION
  Report Type: 
  Country: None (occurrence: None)
  Receive Date: 20071123
  Receipt Date: 20070607
  Transmission Date: 20080405
  Serious: Yes (Hospitalization, Disabling)
  Sender: FDA-Public Use
  Company Number: US-JNJFOC-20061203825

PATIENT
  Age: 73 Year
  Sex: Male
  Weight: 80.7403 kg

DRUGS (9)
  1. LEVAQUIN [Suspect]
     Indication: BRONCHITIS
     Dosage: 500 MG, 1 IN 1 DAY
     Dates: start: 20021119, end: 20021202
  2. PREDNISONE [Suspect]
     Indication: RHEUMATOID ARTHRITIS
     Dosage: 5 MG, 1 IN 1 DAY
  3. REMICADE [Concomitant]
  4. HYDROCHLOROTHIAZIDE [Concomitant]
  5. RANITIDINE [Concomitant]
  6. COZAAR [Concomitant]
  7. ASPIRIN [Concomitant]
  8. METHOTREXATE [Concomitant]
  9. NORVASC [Concomitant]

REACTIONS (1)
  - TENDON RUPTURE [None]
